FAERS Safety Report 20102173 (Version 1)
Quarter: 2021Q4

REPORT INFORMATION
  Report Type: Spontaneous
  Country: BR (occurrence: None)
  Receive Date: 20211122
  Receipt Date: 20211122
  Transmission Date: 20220303
  Serious: Yes (Hospitalization)
  Sender: FDA-Public Use
  Company Number: None

PATIENT
  Age: 39 Year
  Sex: Female
  Weight: 89 kg

DRUGS (1)
  1. BETAMETHASONE VALERATE [Suspect]
     Active Substance: BETAMETHASONE VALERATE
     Indication: Dermatitis atopic
     Dosage: FREQUENCY : TWICE A DAY;?
     Route: 061
     Dates: start: 20201204, end: 20201218

REACTIONS (8)
  - Dermatitis atopic [None]
  - Angioedema [None]
  - Hypertension [None]
  - Wound secretion [None]
  - Pruritus [None]
  - Skin exfoliation [None]
  - Wound infection bacterial [None]
  - Steroid withdrawal syndrome [None]

NARRATIVE: CASE EVENT DATE: 20201220
